FAERS Safety Report 5970137-4 (Version None)
Quarter: 2008Q4

REPORT INFORMATION
  Report Type: 
  Country: None (occurrence: None)
  Receive Date: 20081126
  Receipt Date: 20081103
  Transmission Date: 20090506
  Serious: No
  Sender: FDA-Public Use
  Company Number: US-ABBOTT-08P-163-0481470-00

PATIENT
  Sex: Female
  Weight: 74.002 kg

DRUGS (15)
  1. SIMCOR [Suspect]
     Indication: HIGH DENSITY LIPOPROTEIN DECREASED
     Dosage: 500/20 MG QHS
     Dates: start: 20081001, end: 20081020
  2. SIMCOR [Suspect]
     Indication: CORONARY ARTERY DISEASE
  3. SIMCOR [Suspect]
     Indication: FAMILIAL RISK FACTOR
  4. SIMCOR [Suspect]
     Indication: BLOOD CHOLESTEROL DECREASED
  5. SIMVASTATIN [Concomitant]
     Indication: DRUG USE FOR UNKNOWN INDICATION
  6. ACETYLSALICYLIC ACID SRT [Concomitant]
     Indication: DRUG USE FOR UNKNOWN INDICATION
  7. OMEPRAZOLE MAGNESIUM [Concomitant]
     Indication: REFLUX GASTRITIS
  8. CLOPIDOGREL [Concomitant]
     Indication: STENT PLACEMENT
  9. DIOVAN HCT [Concomitant]
     Indication: DRUG USE FOR UNKNOWN INDICATION
     Dosage: QHS
  10. DIOVAN HCT [Concomitant]
     Indication: BLOOD PRESSURE
     Dosage: 160/12.5 MG Q AM
  11. DIOVAN HCT [Concomitant]
     Indication: DIURETIC THERAPY
  12. LOVAZA [Concomitant]
     Indication: MEDICAL DIET
  13. PREVALITE [Concomitant]
     Indication: REFLUX GASTRITIS
  14. METAMUCIL [Concomitant]
     Indication: DRUG USE FOR UNKNOWN INDICATION
  15. CALTRATE D WITH MVI [Concomitant]
     Indication: DRUG USE FOR UNKNOWN INDICATION

REACTIONS (11)
  - ARTHRALGIA [None]
  - ASTHENIA [None]
  - FLUSHING [None]
  - HEADACHE [None]
  - HEART RATE IRREGULAR [None]
  - INSOMNIA [None]
  - LIVER FUNCTION TEST ABNORMAL [None]
  - MYALGIA [None]
  - PALPITATIONS [None]
  - PRURITUS [None]
  - TENDERNESS [None]
